FAERS Safety Report 6974122-5 (Version None)
Quarter: 2010Q3

REPORT INFORMATION
  Report Type: 
  Country: None (occurrence: None)
  Receive Date: 20100909
  Receipt Date: 20100825
  Transmission Date: 20110219
  Serious: Yes (Hospitalization)
  Sender: FDA-Public Use
  Company Number: US-BAYER-201032712NA

PATIENT
  Age: 30 Year
  Sex: Female
  Weight: 70 kg

DRUGS (11)
  1. YASMIN [Suspect]
     Indication: MENSTRUAL DISORDER
     Dates: start: 20060101, end: 20070101
  2. OCELLA [Suspect]
     Indication: MENSTRUAL DISORDER
     Dates: start: 20080701, end: 20090301
  3. VASOTEC [Concomitant]
     Dates: start: 20070101
  4. ENALAPRIL [Concomitant]
  5. MOTRIN [Concomitant]
  6. GLIPIZIDE [Concomitant]
     Dates: start: 20070101
  7. ENARPLIE [Concomitant]
     Dates: start: 20080101
  8. CLONIDINE [Concomitant]
  9. CONTRACEPTIVES NOS [Concomitant]
  10. HYDROCHLOROTHIAZIDE [Concomitant]
  11. GLUCOPHAGE [Concomitant]

REACTIONS (6)
  - ABDOMINAL PAIN [None]
  - BILIARY COLIC [None]
  - CHOLECYSTITIS CHRONIC [None]
  - CHOLELITHIASIS [None]
  - DECREASED APPETITE [None]
  - VOMITING [None]
